FAERS Safety Report 5649599-8 (Version None)
Quarter: 2008Q1

REPORT INFORMATION
  Report Type: 
  Country: None (occurrence: None)
  Receive Date: 20080304
  Receipt Date: 20080221
  Transmission Date: 20080703
  Serious: Yes (Other)
  Sender: FDA-Public Use
  Company Number: US-PFIZER INC-2008001261

PATIENT
  Sex: Female
  Weight: 113.4 kg

DRUGS (2)
  1. ZITHROMAX [Suspect]
     Indication: OTITIS MEDIA
     Route: 048
     Dates: start: 20071217, end: 20071221
  2. ZITHROMAX [Suspect]
     Indication: TYMPANIC MEMBRANE DISORDER

REACTIONS (5)
  - DEAFNESS [None]
  - EAR DISORDER [None]
  - EAR PAIN [None]
  - TINNITUS [None]
  - VIIITH NERVE LESION [None]
